FAERS Safety Report 12602793 (Version 1)
Quarter: 2016Q3

REPORT INFORMATION
  Report Type: Spontaneous
  Country: BR (occurrence: BR)
  Receive Date: 20160728
  Receipt Date: 20160728
  Transmission Date: 20161109
  Serious: Yes (Other)
  Sender: FDA-Public Use
  Company Number: BR-PFIZER INC-2016354066

PATIENT
  Age: 56 Year
  Sex: Female
  Weight: 67 kg

DRUGS (2)
  1. LIPITOR [Suspect]
     Active Substance: ATORVASTATIN CALCIUM
     Indication: BLOOD CHOLESTEROL INCREASED
     Dosage: 20 MG (1 TABLET), DAILY
     Route: 048
     Dates: start: 2013
  2. EFFEXOR XR [Concomitant]
     Active Substance: VENLAFAXINE HYDROCHLORIDE
     Indication: ANTIDEPRESSANT THERAPY
     Dosage: 150 MG (1 CAPSULE), 1X/DAY
     Route: 048

REACTIONS (2)
  - Carotid artery occlusion [Not Recovered/Not Resolved]
  - Intentional product misuse [Unknown]
